FAERS Safety Report 9460712 (Version 2)
Quarter: 2013Q3

REPORT INFORMATION
  Report Type: Spontaneous
  Country: US (occurrence: US)
  Receive Date: 20130815
  Receipt Date: 20130910
  Transmission Date: 20140515
  Serious: No
  Sender: FDA-Public Use
  Company Number: US-009507513-1308USA003904

PATIENT
  Age: 19 Year
  Sex: Female

DRUGS (1)
  1. IMPLANON [Suspect]
     Indication: CONTRACEPTION
     Dosage: UNK, ONE ROD FOR THREE YEARS
     Route: 059
     Dates: start: 20101109

REACTIONS (3)
  - Local swelling [Unknown]
  - Erythema [Unknown]
  - Implant site discharge [Unknown]
